FAERS Safety Report 4977769-0 (Version None)
Quarter: 2006Q1

REPORT INFORMATION
  Report Type: 
  Country: None (occurrence: None)
  Receive Date: 20060215
  Receipt Date: 20050705
  Transmission Date: 20060701
  Serious: Yes (Death, Other)
  Sender: FDA-Public Use
  Company Number: MC200500582

PATIENT
  Age: 89 Year
  Sex: Female

DRUGS (3)
  1. ANGIOMAX [Suspect]
     Dosage: BOLUS; INTRAVENOUS
     Route: 042
     Dates: start: 20050301
  2. LOVENOX [Concomitant]
  3. ASPIRIN [Concomitant]

REACTIONS (2)
  - CARDIAC ARREST [None]
  - CORONARY ARTERY THROMBOSIS [None]
